FAERS Safety Report 17909200 (Version 1)
Quarter: 2020Q2

REPORT INFORMATION
  Report Type: Spontaneous
  Country: US (occurrence: US)
  Receive Date: 20200617
  Receipt Date: 20200617
  Transmission Date: 20200714
  Serious: Yes (Other)
  Sender: FDA-Public Use
  Company Number: US-IMPRIMIS NJOF-2086043

PATIENT

DRUGS (1)
  1. PREDNISOLONE ACETATE-MOXIFLOXACIN STERILE OPHTHALMIC SUSPENSION [Suspect]
     Active Substance: MOXIFLOXACIN\PREDNISOLONE ACETATE
     Route: 047

REACTIONS (1)
  - Corneal deposits [Recovered/Resolved]
